FAERS Safety Report 6502076-4 (Version None)
Quarter: 2009Q4

REPORT INFORMATION
  Report Type: 
  Country: None (occurrence: None)
  Receive Date: 20091214
  Receipt Date: 20091208
  Transmission Date: 20100525
  Serious: Yes (Hospitalization)
  Sender: FDA-Public Use
  Company Number: SPV1-2009-02468

PATIENT
  Age: 77 Year
  Sex: Female

DRUGS (5)
  1. XAGRID           (ANAGRELIDE HYDROCHLORIDE) [Suspect]
     Indication: ESSENTIAL THROMBOCYTHAEMIA
     Dates: start: 20091011, end: 20091013
  2. LANSOPRAZOLE [Concomitant]
  3. CANDESARTAN CILEXETIL [Concomitant]
  4. PRAVASTATIN SODIUM [Concomitant]
  5. SEROPLEX OXALATE [Concomitant]

REACTIONS (2)
  - COLITIS [None]
  - ILEITIS [None]
